FAERS Safety Report 22271573 (Version 1)
Quarter: 2023Q2

REPORT INFORMATION
  Report Type: Spontaneous
  Country: BE (occurrence: BE)
  Receive Date: 20230502
  Receipt Date: 20230502
  Transmission Date: 20230722
  Serious: Yes (Death, Life-Threatening, Hospitalization)
  Sender: FDA-Public Use
  Company Number: None

PATIENT
  Age: 76 Year
  Sex: Male
  Weight: 57 kg

DRUGS (16)
  1. CARBOPLATIN [Suspect]
     Active Substance: CARBOPLATIN
     Indication: Neoplasm malignant
     Dosage: STRENGTH: 10 MG/ML, 385 MG
     Dates: start: 20230126, end: 20230218
  2. PEMETREXED [Suspect]
     Active Substance: PEMETREXED
     Indication: Neoplasm malignant
     Dosage: STRENGTH: 25 MG/ML, 500 MG
     Dates: start: 20230126, end: 20230218
  3. PEMBROLIZUMAB [Suspect]
     Active Substance: PEMBROLIZUMAB
     Indication: Targeted cancer therapy
     Dosage: STRENGTH: 25 MG/ML, 200 MG
     Dates: start: 20230126, end: 20230218
  4. BEFACT [Concomitant]
     Dosage: 1 CP ONE TIME PER DAY
  5. MELATONIN [Concomitant]
     Active Substance: MELATONIN
     Dosage: STRENGTH: 2MG, AT BEDTIME
  6. COLCHICINE [Concomitant]
     Active Substance: COLCHICINE
     Dosage: STRENGTH: 1MG, 1/2 (0.5 MG) TABLET 2 TIMES PER DAY (IN THE MORNING AND IN THE EVENING)
  7. DIAZEPAM [Concomitant]
     Active Substance: DIAZEPAM
     Dosage: STRNEGTH: 10 MG, AT BEDTIME
  8. DAFALGAN [Concomitant]
     Active Substance: ACETAMINOPHEN
     Indication: Pain
     Dosage: STRENGTH: 1 G, MAXIMUM 3 TIMES PER DAY IF IN PAIN
  9. FOLIC ACID [Concomitant]
     Active Substance: FOLIC ACID
     Dosage: 1 CP ONE TIME PER DAY
  10. ALIZAPRIDE HYDROCHLORIDE [Concomitant]
     Active Substance: ALIZAPRIDE HYDROCHLORIDE
     Indication: Nausea
     Dosage: STRNEGTH: 50MG / 2ML, MAXIMUM 6 AMPOULES PER DAY IF NAUSEA
  11. MOVICOL [Concomitant]
     Active Substance: POLYETHYLENE GLYCOL 3350\POTASSIUM CHLORIDE\SODIUM BICARBONATE\SODIUM CHLORIDE
     Dosage: (SACHET) SINGLE DOSE
  12. MOTILIUM [Concomitant]
     Active Substance: DOMPERIDONE
     Indication: Nausea
     Dosage: STRENGTH: 10 MG, MAXIMUM 3 TABLETS PER DAY IF NAUSEA
  13. NEUROBION [Concomitant]
     Active Substance: CYANOCOBALAMIN\PYRIDOXINE\THIAMINE
     Dosage: EVERY 9 WEEKS
  14. OXYCODONE HYDROCHLORIDE [Concomitant]
     Active Substance: OXYCODONE HYDROCHLORIDE
     Indication: Pain
     Dosage: STRENGTH:  5 MG, INSTANT, MAXIMUM 6 TIMES PER DAY IF PAIN
  15. Pantomed [Concomitant]
     Dosage: STRENGTH: 40 MG, ON AN EMPTY STOMACH
  16. TRAMADOL HYDROCHLORIDE [Concomitant]
     Active Substance: TRAMADOL HYDROCHLORIDE
     Indication: Pain
     Dosage: STRENGTH: 50MG, MAXIMUM 8 TIMES PER DAY IF PAIN, ODIS

REACTIONS (3)
  - Aortic dissection rupture [Fatal]
  - Penetrating aortic ulcer [Fatal]
  - Aortic dissection [Fatal]

NARRATIVE: CASE EVENT DATE: 20230308
